FAERS Safety Report 6812160-3 (Version None)
Quarter: 2010Q3

REPORT INFORMATION
  Report Type: 
  Country: None (occurrence: None)
  Receive Date: 20100701
  Receipt Date: 20100204
  Transmission Date: 20110219
  Serious: No
  Sender: FDA-Public Use
  Company Number: US-ABBOTT-10P-163-0624590-00

PATIENT
  Sex: Male
  Weight: 97.61 kg

DRUGS (3)
  1. NORVIR [Suspect]
     Indication: HIV INFECTION
     Route: 048
     Dates: start: 20100118
  2. TRUVADA [Concomitant]
     Indication: HIV TEST POSITIVE
     Route: 048
  3. PREVISTA [Concomitant]
     Indication: HIV TEST POSITIVE
     Route: 048

REACTIONS (2)
  - HYPOAESTHESIA ORAL [None]
  - SPEECH DISORDER [None]
